FAERS Safety Report 6609629-3 (Version None)
Quarter: 2010Q1

REPORT INFORMATION
  Report Type: 
  Country: None (occurrence: None)
  Receive Date: 20100302
  Receipt Date: 20091028
  Transmission Date: 20100710
  Serious: Yes (Other)
  Sender: FDA-Public Use
  Company Number: US-SANOFI-AVENTIS-200915406US

PATIENT
  Age: 68 Year
  Sex: Female
  Weight: 66.4 kg

DRUGS (10)
  1. LANTUS [Suspect]
     Dosage: DOSE:30 UNIT(S)
     Route: 058
  2. SOLOSTAR [Suspect]
  3. METFORMIN HYDROCHLORIDE [Concomitant]
  4. BUPROPION HYDROCHLORIDE [Concomitant]
  5. OMEPRAZOLE [Concomitant]
  6. CELEBREX [Concomitant]
  7. PRIMIDONE [Concomitant]
     Dosage: DOSE AS USED: 50MG, 1/2 IN THE AM AND 1/2 AT LUNCH AND ? ONE HALF AT BEDTIME
  8. LIBRIUM ^ICN^ [Concomitant]
     Dosage: DOSE AS USED: 10 MG AS NEEDED PER DAY MG
  9. TOLTERODINE TARTRATE [Concomitant]
  10. BUSPAR [Concomitant]

REACTIONS (2)
  - WEIGHT DECREASED [None]
  - WEIGHT INCREASED [None]
